FAERS Safety Report 6572193-1 (Version None)
Quarter: 2010Q1

REPORT INFORMATION
  Report Type: 
  Country: None (occurrence: None)
  Receive Date: 20100205
  Receipt Date: 20100127
  Transmission Date: 20100710
  Serious: Yes (Hospitalization)
  Sender: FDA-Public Use
  Company Number: PHEH2010US01504

PATIENT
  Sex: Female

DRUGS (13)
  1. EXJADE [Suspect]
     Indication: SICKLE CELL ANAEMIA
     Dosage: 2000 MG, QD
     Route: 048
     Dates: start: 20080821
  2. DICYCLOMINE [Concomitant]
  3. BISACODYL [Concomitant]
  4. COLACE [Concomitant]
  5. RISPERIDONE [Concomitant]
  6. DETROL [Concomitant]
  7. NEXIUM [Concomitant]
  8. FOLIC ACID [Concomitant]
  9. LAMICTAL [Concomitant]
  10. IBUPROFEN [Concomitant]
  11. LYRICA [Concomitant]
  12. BACTRIM [Concomitant]
  13. PROZAC [Concomitant]

REACTIONS (1)
  - MENTAL DISORDER [None]
